FAERS Safety Report 23294507 (Version 5)
Quarter: 2024Q3

REPORT INFORMATION
  Report Type: Spontaneous
  Country: US (occurrence: US)
  Receive Date: 20231213
  Receipt Date: 20240815
  Transmission Date: 20241017
  Serious: No
  Sender: BRISTOL MYERS SQUIBB
  Company Number: US-BRISTOL-MYERS SQUIBB COMPANY-2023-180904

PATIENT
  Age: 63 Year
  Sex: Male
  Weight: 70.76 kg

DRUGS (3)
  1. POMALYST [Suspect]
     Active Substance: POMALIDOMIDE
     Indication: Plasma cell myeloma
     Route: 048
  2. POMALYST [Suspect]
     Active Substance: POMALIDOMIDE
     Indication: Neuralgia
  3. POMALYST [Suspect]
     Active Substance: POMALIDOMIDE
     Indication: Neuritis

REACTIONS (8)
  - Influenza [Not Recovered/Not Resolved]
  - Bronchitis [Unknown]
  - COVID-19 [Unknown]
  - Diarrhoea [Unknown]
  - Fatigue [Unknown]
  - Headache [Unknown]
  - Dyspnoea [Unknown]
  - Somnolence [Unknown]

NARRATIVE: CASE EVENT DATE: 20231212
